FAERS Safety Report 5528481-0 (Version None)
Quarter: 2007Q4

REPORT INFORMATION
  Report Type: 
  Country: None (occurrence: None)
  Receive Date: 20071128
  Receipt Date: 20071119
  Transmission Date: 20080405
  Serious: Yes (Other)
  Sender: FDA-Public Use
  Company Number: JP-BOEHRINGER INGELHEIM PHARMACEUTICALS, INC.-2007-DE-06826GD

PATIENT
  Age: 19 Year
  Sex: Male

DRUGS (2)
  1. RANITIDINE HCL [Suspect]
     Indication: DUODENAL ULCER
  2. LANSOPRAZOLE [Suspect]
     Indication: DUODENAL ULCER
     Dosage: MAXIMUM DOSE 30 MG/DAY

REACTIONS (3)
  - DRUG INEFFECTIVE [None]
  - DUODENAL ULCER PERFORATION [None]
  - INTESTINAL FISTULA [None]
